FAERS Safety Report 8207141-1 (Version None)
Quarter: 2012Q1

REPORT INFORMATION
  Report Type: 
  Country: None (occurrence: None)
  Receive Date: 20120314
  Receipt Date: 20120308
  Transmission Date: 20120608
  Serious: No
  Sender: FDA-Public Use
  Company Number: US-PFIZER INC-2012062387

PATIENT
  Sex: Male

DRUGS (3)
  1. VIAGRA [Suspect]
     Dosage: UNK
  2. TOVIAZ [Suspect]
     Dosage: UNK
  3. DETROL LA [Suspect]

REACTIONS (1)
  - HYPERTONIC BLADDER [None]
